FAERS Safety Report 17293839 (Version 1)
Quarter: 2020Q1

REPORT INFORMATION
  Report Type: Spontaneous
  Country: US (occurrence: US)
  Receive Date: 20200120
  Receipt Date: 20200120
  Transmission Date: 20200409
  Serious: No
  Sender: FDA-Public Use
  Company Number: None

PATIENT
  Sex: Female

DRUGS (8)
  1. ENBREL [Suspect]
     Active Substance: ETANERCEPT
     Indication: MULTIPLE SCLEROSIS
     Dosage: ?          OTHER FREQUENCY:Q WEEKLY;?
     Route: 058
     Dates: start: 20161112
  2. LEFLUNOMIDE 20MG [Concomitant]
     Active Substance: LEFLUNOMIDE
     Dates: start: 20191217
  3. INCRUSE ELPT INH 62.5 MCG [Concomitant]
     Dates: start: 20191122
  4. MONTELUKAST [Concomitant]
     Active Substance: MONTELUKAST SODIUM
     Dates: start: 20191122
  5. FUROSEMIDE 20MG [Concomitant]
     Active Substance: FUROSEMIDE
     Dates: start: 20110630
  6. FLUTICASONE SPRAY 50MCG [Concomitant]
     Dates: start: 20191122
  7. URSODIOL 300MG [Concomitant]
     Dates: start: 20191104
  8. ARNUITY ELPT INH 200MCG [Concomitant]
     Dates: start: 20191127

REACTIONS (2)
  - Drug ineffective [None]
  - Device issue [None]
